FAERS Safety Report 11636805 (Version 1)
Quarter: 2015Q4

REPORT INFORMATION
  Report Type: Spontaneous
  Country: US (occurrence: None)
  Receive Date: 20151015
  Receipt Date: 20151015
  Transmission Date: 20160304
  Serious: No
  Sender: FDA-Public Use
  Company Number: None

PATIENT
  Age: 56 Year
  Sex: Female

DRUGS (7)
  1. FINACEA [Concomitant]
     Active Substance: AZELAIC ACID
  2. CALCIUM [Concomitant]
     Active Substance: CALCIUM
  3. MEDROXYPROGESTERONE ACETATE. [Concomitant]
     Active Substance: MEDROXYPROGESTERONE ACETATE
  4. NOPAL CACTUS [Concomitant]
  5. ESTRADIOL. [Concomitant]
     Active Substance: ESTRADIOL
  6. COLONCLENZ [Concomitant]
  7. NATRABIO THE ARNICA RUB [Suspect]
     Active Substance: ARNICA MONTANA
     Indication: MYALGIA
     Dosage: 2 OZ.; 1 TUBE; 2-4 TIMES DAILY; SKIN

REACTIONS (5)
  - Application site erythema [None]
  - Hypersensitivity [None]
  - Application site pruritus [None]
  - Application site reaction [None]
  - No reaction on previous exposure to drug [None]

NARRATIVE: CASE EVENT DATE: 20150605
